FAERS Safety Report 4507532-6 (Version None)
Quarter: 2004Q4

REPORT INFORMATION
  Report Type: 
  Country: None (occurrence: None)
  Receive Date: 20041118
  Receipt Date: 20041105
  Transmission Date: 20050328
  Serious: Yes (Death)
  Sender: FDA-Public Use
  Company Number: 2004088663

PATIENT
  Age: 42 Year
  Sex: Male

DRUGS (6)
  1. ZELDOX [Suspect]
     Indication: SCHIZOPHRENIA
     Dosage: 120 MG, ORAL
     Route: 048
     Dates: start: 20040909
  2. PROPRANOLOL HYDROCHLORIDE [Concomitant]
  3. LEVOTHYROXINE SODIUM [Concomitant]
  4. SINUSELECT (HOMEOPATHIC NOS) [Concomitant]
  5. SELENIDE SODIUM [Concomitant]
  6. ANTI-HISTAMINE TAB [Concomitant]

REACTIONS (3)
  - FAMILY STRESS [None]
  - FEELING ABNORMAL [None]
  - SUDDEN CARDIAC DEATH [None]
